FAERS Safety Report 15366995 (Version 1)
Quarter: 2018Q3

REPORT INFORMATION
  Report Type: Other
  Country: CN (occurrence: CN)
  Receive Date: 20180910
  Receipt Date: 20180910
  Transmission Date: 20181010
  Serious: Yes (Other)
  Sender: FDA-Public Use
  Company Number: CN-IMPAX LABORATORIES, INC-2018-IPXL-02922

PATIENT
  Age: 34 Year
  Sex: Male
  Weight: 65 kg

DRUGS (1)
  1. ALBENZA [Suspect]
     Active Substance: ALBENDAZOLE
     Indication: ASCARIASIS
     Dosage: TWO DOSAGE FORM, ONCE A DAY (QD)
     Route: 048
     Dates: start: 20180721, end: 20180722

REACTIONS (2)
  - Dry mouth [Recovered/Resolved]
  - Toxocariasis [Recovered/Resolved]

NARRATIVE: CASE EVENT DATE: 20180722
